FAERS Safety Report 6710270-2 (Version None)
Quarter: 2010Q2

REPORT INFORMATION
  Report Type: 
  Country: None (occurrence: None)
  Receive Date: 20100430
  Receipt Date: 20100428
  Transmission Date: 20101027
  Serious: Yes (Hospitalization)
  Sender: FDA-Public Use
  Company Number: SPV1-2010-00405

PATIENT
  Age: 41 Year
  Sex: Male

DRUGS (12)
  1. FOSRENOL [Suspect]
     Indication: HYPERPHOSPHATAEMIA
     Dosage: SEE IMAGE
     Route: 048
     Dates: start: 20090710, end: 20090925
  2. FOSRENOL [Suspect]
     Indication: HYPERPHOSPHATAEMIA
     Dosage: SEE IMAGE
     Route: 048
     Dates: start: 20090925
  3. CELECOXIB [Suspect]
     Indication: DRUG USE FOR UNKNOWN INDICATION
     Dosage: 200 MG, TOTAL DAILY DOSE, ORAL
     Route: 048
  4. CALTAN (CALCIUM CARBONATE) [Concomitant]
  5. OXAROL (MAXACALCITROL) [Concomitant]
  6. CINACALCET HYDROCHLORIDE (CINACALCET HYDROCHLORIDE) [Concomitant]
  7. ALLOPURINOL [Concomitant]
  8. PLETAL [Concomitant]
  9. NEOMALLERMIN TR (CHLORPHENARAMINE MALEATE) [Concomitant]
  10. NORVASC [Concomitant]
  11. EPOGEN [Concomitant]
  12. RENAGEL [Concomitant]

REACTIONS (2)
  - GASTRIC ULCER HAEMORRHAGE [None]
  - UPPER RESPIRATORY TRACT INFLAMMATION [None]
